FAERS Safety Report 5040813-9 (Version None)
Quarter: 2006Q2

REPORT INFORMATION
  Report Type: 
  Country: None (occurrence: None)
  Receive Date: 20060629
  Receipt Date: 20060629
  Transmission Date: 20061013
  Serious: No
  Sender: FDA-Public Use
  Company Number: None

PATIENT
  Age: 66 Year
  Sex: Female
  Weight: 54.4 kg

DRUGS (4)
  1. TOPOTECAN [Suspect]
     Indication: DISEASE RECURRENCE
     Dosage: 3.5 MG/M2   WEEKLY X 3    IV DRIP
     Route: 041
     Dates: start: 20060511, end: 20060624
  2. TOPOTECAN [Suspect]
     Indication: OVARIAN CANCER
     Dosage: 3.5 MG/M2   WEEKLY X 3    IV DRIP
     Route: 041
     Dates: start: 20060511, end: 20060624
  3. TAXOTERE [Suspect]
     Indication: DISEASE RECURRENCE
     Dosage: 30MG/M2    WEEKLY X 3      IV DRIP
     Route: 041
     Dates: start: 20060511, end: 20060624
  4. TAXOTERE [Suspect]
     Indication: OVARIAN CANCER
     Dosage: 30MG/M2    WEEKLY X 3      IV DRIP
     Route: 041
     Dates: start: 20060511, end: 20060624

REACTIONS (4)
  - DIZZINESS [None]
  - HAEMATOCRIT DECREASED [None]
  - HAEMOGLOBIN DECREASED [None]
  - HYPOTENSION [None]
